FAERS Safety Report 7922548-5 (Version None)
Quarter: 2011Q4

REPORT INFORMATION
  Report Type: 
  Country: None (occurrence: None)
  Receive Date: 20111117
  Receipt Date: 20110330
  Transmission Date: 20120403
  Serious: No
  Sender: FDA-Public Use
  Company Number: US-ALLERGAN-1011369US

PATIENT
  Age: 83 Year
  Sex: Female

DRUGS (9)
  1. ALENDRONATE SODIUM [Concomitant]
     Indication: BONE DENSITY DECREASED
     Dosage: 70 MG, Q WEEK
     Route: 048
  2. AMLODIPINE [Concomitant]
     Indication: HYPERTENSION
     Dosage: 5 MG, BID
     Route: 048
  3. SPIRONOLACTONE W/ HYDROCHLOROTHIAZIDE [Concomitant]
     Indication: HYPERTENSION
     Dosage: 20/25 MG, QD
  4. BENAZEPRIL HYDROCHLORIDE [Concomitant]
     Indication: HYPERTENSION
     Dosage: 20 MG, QD
     Route: 048
  5. LOVASTATIN [Concomitant]
     Indication: BLOOD CHOLESTEROL INCREASED
     Dosage: 20 MG, QD
     Route: 048
  6. XALATAN [Concomitant]
     Indication: GLAUCOMA
     Dosage: 1 GTT, QPM
     Route: 047
  7. POTASSIUM [Concomitant]
     Indication: PRODUCT USED FOR UNKNOWN INDICATION
     Dosage: UNK
     Route: 048
  8. ALPHAGAN P [Suspect]
     Indication: GLAUCOMA
     Dosage: 1 GTT, BID
     Route: 047
     Dates: start: 19980101, end: 20100825
  9. COMBIGAN [Suspect]
     Indication: GLAUCOMA
     Dosage: 1 GTT, BID
     Route: 047
     Dates: start: 20100825

REACTIONS (3)
  - MUSCULAR WEAKNESS [None]
  - NAUSEA [None]
  - ASTHENIA [None]
